FAERS Safety Report 5723275-5 (Version None)
Quarter: 2008Q2

REPORT INFORMATION
  Report Type: 
  Country: None (occurrence: None)
  Receive Date: 20080430
  Receipt Date: 20080211
  Transmission Date: 20081010
  Serious: No
  Sender: FDA-Public Use
  Company Number: US-ASTRAZENECA-2008UW02885

PATIENT
  Age: 90 Year
  Sex: Male
  Weight: 71.2 kg

DRUGS (3)
  1. NEXIUM [Suspect]
     Indication: GASTROOESOPHAGEAL REFLUX DISEASE
     Route: 048
     Dates: start: 20080101
  2. POTASSIUM CHLORIDE [Concomitant]
  3. FUROSEMIDE [Concomitant]

REACTIONS (2)
  - DIARRHOEA [None]
  - NASOPHARYNGITIS [None]
